FAERS Safety Report 21712331 (Version 3)
Quarter: 2023Q1

REPORT INFORMATION
  Report Type: Spontaneous
  Country: GB (occurrence: GB)
  Receive Date: 20221212
  Receipt Date: 20230111
  Transmission Date: 20230417
  Serious: Yes (Other)
  Sender: FDA-Public Use
  Company Number: GB-MYLANLABS-2022M1132232

PATIENT
  Age: 82 Year
  Sex: Male
  Weight: 69.1 kg

DRUGS (2)
  1. CLOZARIL [Suspect]
     Active Substance: CLOZAPINE
     Indication: Psychotic disorder
     Dosage: 25 MILLIGRAM QD ONCE DOSE ONLY,
     Route: 048
     Dates: start: 20221115, end: 20221118
  2. CLOZARIL [Suspect]
     Active Substance: CLOZAPINE
     Indication: Parkinson^s disease
     Dosage: 25 MILLIGRAM, QD (MANE)
     Route: 048
     Dates: start: 20221118, end: 20221118

REACTIONS (3)
  - Blood pressure increased [Recovered/Resolved]
  - Urinary tract infection [Unknown]
  - Somnolence [Unknown]

NARRATIVE: CASE EVENT DATE: 20221118
